FAERS Safety Report 20119279 (Version 2)
Quarter: 2025Q2

REPORT INFORMATION
  Report Type: Spontaneous
  Country: GB (occurrence: GB)
  Receive Date: 20211126
  Receipt Date: 20250602
  Transmission Date: 20250716
  Serious: Yes (Life-Threatening, Other)
  Sender: CSL BEHRING
  Company Number: None

PATIENT
  Age: 36 Year
  Sex: Female
  Weight: 89.8 kg

DRUGS (13)
  1. HUMAN RHO(D) IMMUNE GLOBULIN [Suspect]
     Active Substance: HUMAN RHO(D) IMMUNE GLOBULIN
     Route: 058
  2. BECONASE AQ [Concomitant]
     Active Substance: BECLOMETHASONE DIPROPIONATE MONOHYDRATE
     Route: 045
     Dates: start: 20211021
  3. CYCLIZINE [Concomitant]
     Active Substance: CYCLIZINE
     Indication: Nausea
     Dates: start: 20211021
  4. CYCLIZINE [Concomitant]
     Active Substance: CYCLIZINE
     Indication: Vomiting
  5. FERROUS FUMARATE [Concomitant]
     Active Substance: FERROUS FUMARATE
     Dates: start: 20210916, end: 20211021
  6. LANSOPRAZOLE [Concomitant]
     Active Substance: LANSOPRAZOLE
     Dosage: 1 DOSAGE FORM, QD
     Dates: start: 20211001, end: 20211021
  7. POLYETHYLENE GLYCOL 3350\POTASSIUM CHLORIDE\SODIUM BICARBONATE\SODIUM [Concomitant]
     Active Substance: POLYETHYLENE GLYCOL 3350\POTASSIUM CHLORIDE\SODIUM BICARBONATE\SODIUM CHLORIDE
     Indication: Constipation
     Dates: start: 20211005
  8. METFORMIN [Concomitant]
     Active Substance: METFORMIN HYDROCHLORIDE
     Dosage: TAKE ONE DAILY WITH EVENING MEAL. DURING A SHORT ILLNESS CAUSING VOMITING OR DIARRHOEA, STOP THIS ME
     Dates: start: 20211007, end: 20211021
  9. OMEPRAZOLE [Concomitant]
     Active Substance: OMEPRAZOLE
     Indication: Gastrointestinal disorder
     Dosage: TAKE ONE CAPSULE ONCE A DAY ON AN EMPTY STOMACH
     Dates: start: 20210824
  10. ONDANSETRON [Concomitant]
     Active Substance: ONDANSETRON
     Indication: Morning sickness
     Dates: start: 20210824, end: 20211021
  11. ACIDEX [ALUMINIUM HYDROXIDE;ALUMINIUM HYDROXIDE-MAGNESIUM CARBONATE GE [Concomitant]
     Indication: Dyspepsia
     Dates: start: 20210907
  12. ACIDEX [ALUMINIUM HYDROXIDE;ALUMINIUM HYDROXIDE-MAGNESIUM CARBONATE GE [Concomitant]
     Indication: Dyspepsia
  13. SERTRALINE [Concomitant]
     Active Substance: SERTRALINE HYDROCHLORIDE
     Indication: Depressed mood
     Dosage: 2 DOSAGE FORM, QD
     Dates: start: 20210825

REACTIONS (3)
  - Anaphylactic reaction [Recovered/Resolved]
  - Maternal exposure during pregnancy [Unknown]
  - Incorrect route of product administration [Unknown]

NARRATIVE: CASE EVENT DATE: 20211116
